FAERS Safety Report 6280260-5 (Version None)
Quarter: 2009Q3

REPORT INFORMATION
  Report Type: 
  Country: None (occurrence: None)
  Receive Date: 20090723
  Receipt Date: 20070523
  Transmission Date: 20100115
  Serious: No
  Sender: FDA-Public Use
  Company Number: US-ASTRAZENECA-2006UW26296

PATIENT
  Age: 17474 Day
  Sex: Male
  Weight: 77.1 kg

DRUGS (18)
  1. SEROQUEL [Suspect]
     Indication: SCHIZOPHRENIA
     Route: 048
     Dates: start: 20020101
  2. SEROQUEL [Suspect]
     Indication: DEPRESSION
     Route: 048
     Dates: start: 20020101
  3. SEROQUEL [Suspect]
     Dosage: 25MG-600MG
     Route: 048
     Dates: start: 20030121
  4. SEROQUEL [Suspect]
     Dosage: 25MG-600MG
     Route: 048
     Dates: start: 20030121
  5. ABILIFY [Concomitant]
     Dates: start: 20020101
  6. ABILIFY [Concomitant]
     Dates: start: 20041019
  7. RISPERDAL [Concomitant]
     Dates: start: 20010101
  8. LEXAPRO [Concomitant]
     Indication: DEPRESSION
     Dates: start: 20030101
  9. LEXAPRO [Concomitant]
     Dosage: 10MG-20MG
     Dates: start: 20040720
  10. METHADONE HCL [Concomitant]
     Dates: start: 19940101
  11. AMITRIPTYLINE HCL [Concomitant]
     Dates: start: 20030822
  12. NEXIUM [Concomitant]
     Dates: start: 20080203
  13. LISINOPRIL [Concomitant]
     Indication: HYPERTENSION
     Dosage: 2.5MG-40MG
     Dates: start: 20050308
  14. COREG [Concomitant]
     Dates: start: 20051029
  15. TRAZODONE [Concomitant]
     Dosage: 50MG-200MG
     Dates: start: 20051111
  16. NIASPAN [Concomitant]
     Dates: start: 20061227
  17. TEGRETOL [Concomitant]
     Dosage: 100MG-400MG
     Dates: start: 20040922
  18. LOVENOX [Concomitant]
     Dates: start: 20051029

REACTIONS (3)
  - DIABETES MELLITUS [None]
  - TYPE 1 DIABETES MELLITUS [None]
  - TYPE 2 DIABETES MELLITUS [None]
